FAERS Safety Report 6742787-9 (Version None)
Quarter: 2010Q2

REPORT INFORMATION
  Report Type: 
  Country: None (occurrence: None)
  Receive Date: 20100525
  Receipt Date: 20100510
  Transmission Date: 20101027
  Serious: Yes (Death)
  Sender: FDA-Public Use
  Company Number: AUR-APL-2010-01275

PATIENT
  Age: 48 Year
  Sex: Male

DRUGS (4)
  1. FLUOXETINE [Suspect]
  2. OXYMORPHONE [Suspect]
  3. CHLORDIAZEPOXIDE [Suspect]
  4. ETHANOL [Suspect]

REACTIONS (9)
  - ARTERIOSCLEROSIS CORONARY ARTERY [None]
  - CHILLS [None]
  - CONTUSION [None]
  - DRUG SCREEN POSITIVE [None]
  - DRUG TOXICITY [None]
  - EXCORIATION [None]
  - LEFT VENTRICULAR HYPERTROPHY [None]
  - LIVIDITY [None]
  - PULMONARY CONGESTION [None]
